FAERS Safety Report 15607297 (Version 1)
Quarter: 2018Q4

REPORT INFORMATION
  Report Type: Spontaneous
  Country: BR (occurrence: BR)
  Receive Date: 20181112
  Receipt Date: 20181112
  Transmission Date: 20190205
  Serious: Yes (Other)
  Sender: FDA-Public Use
  Company Number: BR-AMGEN-BRASP2018157001

PATIENT
  Age: 65 Year
  Sex: Female
  Weight: 41.2 kg

DRUGS (4)
  1. PROLIA [Suspect]
     Active Substance: DENOSUMAB
     Indication: OSTEOPOROSIS
     Dosage: 1 SYRINGE, Q6MO
     Route: 058
     Dates: start: 2016
  2. DPREV [Concomitant]
     Dosage: 10000 UNK
  3. VELUSETRAG [Concomitant]
  4. TREZOR [Concomitant]
     Active Substance: ROSUVASTATIN CALCIUM

REACTIONS (2)
  - Accidental exposure to product [Unknown]
  - Glaucoma [Unknown]

NARRATIVE: CASE EVENT DATE: 20181105
